FAERS Safety Report 21320063 (Version 1)
Quarter: 2022Q3

REPORT INFORMATION
  Report Type: Spontaneous
  Country: US (occurrence: US)
  Receive Date: 20220911
  Receipt Date: 20220911
  Transmission Date: 20221026
  Serious: No
  Sender: FDA-Public Use
  Company Number: US-SANOFI-01263117

PATIENT
  Age: 47 Year
  Sex: Female

DRUGS (1)
  1. DUPIXENT [Suspect]
     Active Substance: DUPILUMAB
     Indication: Dermatitis atopic
     Dosage: 300 MG QOW
     Route: 065
     Dates: start: 202110

REACTIONS (5)
  - Chills [Unknown]
  - Dysphonia [Unknown]
  - COVID-19 [Unknown]
  - Injury [Unknown]
  - Feeling cold [Unknown]
